FAERS Safety Report 7833760-8 (Version None)
Quarter: 2011Q4

REPORT INFORMATION
  Report Type: 
  Country: None (occurrence: None)
  Receive Date: 20111024
  Receipt Date: 20111019
  Transmission Date: 20120403
  Serious: Yes (Death)
  Sender: FDA-Public Use
  Company Number: US-ELI_LILLY_AND_COMPANY-US201110005014

PATIENT
  Sex: Female

DRUGS (3)
  1. CORTICOSTEROIDS [Concomitant]
  2. GEMZAR [Suspect]
     Indication: GALLBLADDER CANCER
     Dosage: 1680 MG, UNK
     Dates: end: 20110802
  3. ANTIEMETICS AND ANTINAUSEANTS [Concomitant]

REACTIONS (1)
  - DEATH [None]
